FAERS Safety Report 8969780 (Version 1)
Quarter: 2012Q4

REPORT INFORMATION
  Report Type: 
  Country: US (occurrence: US)
  Receive Date: 20121217
  Receipt Date: 20121217
  Transmission Date: 20130627
  Serious: No
  Sender: FDA-Public Use
  Company Number: US-BAYER-2012-121651

PATIENT
  Sex: Male

DRUGS (1)
  1. GADAVIST [Suspect]
     Indication: MRI
     Dosage: 10 ml, ONCE

REACTIONS (2)
  - Erythema [None]
  - Rash macular [None]
